FAERS Safety Report 7823485-7 (Version None)
Quarter: 2011Q4

REPORT INFORMATION
  Report Type: 
  Country: None (occurrence: None)
  Receive Date: 20111019
  Receipt Date: 20111017
  Transmission Date: 20120403
  Serious: Yes (Death, Other)
  Sender: FDA-Public Use
  Company Number: AT-PFIZER INC-2011143595

PATIENT
  Age: 66 Year
  Sex: Male
  Weight: 95 kg

DRUGS (13)
  1. ETALPHA [Concomitant]
  2. SILDENAFIL CITRATE [Suspect]
     Indication: PERIPHERAL ARTERIAL OCCLUSIVE DISEASE
     Dosage: 50 MG, 1X/DAY
     Route: 048
     Dates: start: 20101007, end: 20101101
  3. CLINDAMYCIN [Concomitant]
  4. CIPROFLAXACIN [Concomitant]
  5. AMLODIPINE/VALSARTAN [Concomitant]
  6. VASONIT [Concomitant]
  7. HYDROMORPHONE HCL [Concomitant]
  8. PANTOPRAZOLE SODIUM [Concomitant]
  9. SILDENAFIL CITRATE [Suspect]
     Dosage: 50 MG, 1X/DAY
     Route: 048
     Dates: start: 20110301
  10. ASPIRIN [Concomitant]
  11. OSVAREN [Concomitant]
  12. DOXAZOSIN [Concomitant]
  13. AMLODIPINE [Concomitant]

REACTIONS (4)
  - ISCHAEMIC CARDIOMYOPATHY [None]
  - CARDIOGENIC SHOCK [None]
  - VASCULAR OPERATION [None]
  - VENTRICULAR FIBRILLATION [None]
